FAERS Safety Report 12092326 (Version 1)
Quarter: 2016Q1

REPORT INFORMATION
  Report Type: Spontaneous
  Country: US (occurrence: None)
  Receive Date: 20160217
  Receipt Date: 20160217
  Transmission Date: 20160526
  Serious: No
  Sender: FDA-Public Use
  Company Number: None

PATIENT
  Age: 61 Year
  Sex: Female

DRUGS (1)
  1. FORTEO [Suspect]
     Active Substance: TERIPARATIDE
     Indication: OSTEOPOROSIS
     Dosage: INJECT UNDER THE SKIN
     Dates: start: 20151125, end: 201602

REACTIONS (2)
  - Pain [None]
  - Pain in extremity [None]

NARRATIVE: CASE EVENT DATE: 201602
